FAERS Safety Report 11316548 (Version 2)
Quarter: 2015Q3

REPORT INFORMATION
  Report Type: Spontaneous
  Country: FR (occurrence: FR)
  Receive Date: 20150728
  Receipt Date: 20150818
  Transmission Date: 20151125
  Serious: Yes (Other)
  Sender: FDA-Public Use
  Company Number: FR-GLAXOSMITHKLINE-FR2015GSK103659

PATIENT
  Age: 68 Year
  Sex: Female

DRUGS (4)
  1. TAFINLAR [Concomitant]
     Active Substance: DABRAFENIB MESYLATE
     Indication: METASTATIC MALIGNANT MELANOMA
     Dosage: UNK
     Dates: start: 20150209, end: 20150610
  2. ZELBORAF [Suspect]
     Active Substance: VEMURAFENIB
     Indication: METASTATIC MALIGNANT MELANOMA
     Dosage: 960 MG, BID
     Route: 048
     Dates: start: 20150613, end: 20150630
  3. AUGMENTIN [Suspect]
     Active Substance: AMOXICILLIN\CLAVULANATE POTASSIUM
     Indication: LUNG DISORDER
     Dosage: UNK
     Route: 048
     Dates: start: 201506, end: 20150630
  4. SORIATANE [Suspect]
     Active Substance: ACITRETIN
     Indication: SKIN PAPILLOMA
     Dosage: 25 MG, 1D
     Route: 048
     Dates: start: 20150610, end: 20150629

REACTIONS (5)
  - Drug reaction with eosinophilia and systemic symptoms [Unknown]
  - Face oedema [Recovered/Resolved]
  - Asthenia [Recovered/Resolved]
  - Acute kidney injury [Not Recovered/Not Resolved]
  - Eosinophilia [Recovered/Resolved]

NARRATIVE: CASE EVENT DATE: 201506
